FAERS Safety Report 11325995 (Version 3)
Quarter: 2015Q3

REPORT INFORMATION
  Report Type: Spontaneous
  Country: US (occurrence: US)
  Receive Date: 20150731
  Receipt Date: 20150817
  Transmission Date: 20151125
  Serious: No
  Sender: FDA-Public Use
  Company Number: US-TEVA-582021ACC

PATIENT
  Sex: Female
  Weight: 67.19 kg

DRUGS (1)
  1. PARAGARD T 380A [Suspect]
     Active Substance: COPPER
     Indication: CONTRACEPTION
     Route: 015
     Dates: start: 201407, end: 20150806

REACTIONS (8)
  - Vaginal odour [Not Recovered/Not Resolved]
  - Menorrhagia [Not Recovered/Not Resolved]
  - Back pain [Not Recovered/Not Resolved]
  - Dysmenorrhoea [Not Recovered/Not Resolved]
  - Vulvovaginal hypoaesthesia [Not Recovered/Not Resolved]
  - Anaemia [Not Recovered/Not Resolved]
  - Hypoaesthesia [Not Recovered/Not Resolved]
  - Menstruation irregular [Not Recovered/Not Resolved]

NARRATIVE: CASE EVENT DATE: 2014
